FAERS Safety Report 10239426 (Version 1)
Quarter: 2014Q1

REPORT INFORMATION
  Report Type: Spontaneous
  Country: US (occurrence: None)
  Receive Date: 20140306
  Receipt Date: 20140306
  Transmission Date: 20141002
  Serious: Yes (Other)
  Sender: FDA-Public Use
  Company Number: 163-21880-13034012

PATIENT
  Age: 61 Year
  Sex: Female
  Weight: 73.03 kg

DRUGS (13)
  1. REVLIMID (LENALIDOMIDE) (25 MILLIGRAM, CAPSULES) [Suspect]
     Indication: PLASMA CELL MYELOMA
     Route: 048
     Dates: start: 201212
  2. ADULT LOW DOSE ASPIRIN (ACETYLSALICYLIC ACID) (UNKNOWN) [Concomitant]
  3. DEXAMETHASONE (DEXAMETHASONE) (UNKNOWN) [Concomitant]
  4. EXEMESTANE (EXEMESTANE) (UNKNOWN) [Concomitant]
  5. GLYBURIDE (GLIBENCLAMIDE) (TABLETS) [Concomitant]
  6. HYDROCHLOROTHIAZIDE (HYDROCHLOROTHIAZIDE) (UNKNOWN) [Concomitant]
  7. LORAZEPAM (LORAZEPAM) (TABLETS) [Concomitant]
  8. METFORMIN HCL (METFORMIN HYDROCHLORIDE) (UNKNOWN) [Concomitant]
  9. MULTIVITAMINS (MULTIVITAMINS) (CAPSULES) [Concomitant]
  10. TYLENOL (PARACETAMOL) (TABLETS) [Concomitant]
  11. QUINAPRIL (QUINAPRIL) (TABLETS) [Concomitant]
  12. POTASSIUM GLUCONATE (POTASSIUM GLUCONATE) (UNKNOWN) [Concomitant]
  13. VITAMIN D (ERGOCALCIFEROL) (UNKNOWN) [Concomitant]

REACTIONS (7)
  - Balance disorder [None]
  - Diarrhoea [None]
  - Fatigue [None]
  - Lethargy [None]
  - Blood potassium decreased [None]
  - Blood pressure abnormal [None]
  - Blood glucose abnormal [None]
